FAERS Safety Report 23079004 (Version 1)
Quarter: 2023Q4

REPORT INFORMATION
  Report Type: Report from Study
  Country: US (occurrence: US)
  Receive Date: 20231018
  Receipt Date: 20231018
  Transmission Date: 20240109
  Serious: Yes (Hospitalization)
  Sender: FDA-Public Use
  Company Number: US-Accord-385459

PATIENT
  Age: 73 Year
  Sex: Male

DRUGS (19)
  1. TRAZODONE HYDROCHLORIDE [Suspect]
     Active Substance: TRAZODONE HYDROCHLORIDE
     Indication: Product used for unknown indication
  2. RELUGOLIX [Suspect]
     Active Substance: RELUGOLIX
     Indication: Prostate cancer
     Dosage: STRENGTH: 120 MG?360 MILLIGRAM, ONE TIME DOSE
     Route: 048
  3. PREDNISONE [Suspect]
     Active Substance: PREDNISONE
     Indication: Product used for unknown indication
  4. ABIRATERONE [Concomitant]
     Active Substance: ABIRATERONE
  5. ATORVASTATIN CALCIUM [Concomitant]
     Active Substance: ATORVASTATIN CALCIUM
  6. CARVEDILOL [Concomitant]
     Active Substance: CARVEDILOL
  7. CLONAZEPAM [Concomitant]
     Active Substance: CLONAZEPAM
  8. CLONIDINE [Concomitant]
     Active Substance: CLONIDINE
  9. CLOPIDOGREL BISULFATE [Concomitant]
     Active Substance: CLOPIDOGREL BISULFATE
  10. ELIQUIS [Concomitant]
     Active Substance: APIXABAN
  11. FUROSEMIDE [Concomitant]
     Active Substance: FUROSEMIDE
  12. ISOSORBIDE DINITRATE [Concomitant]
     Active Substance: ISOSORBIDE DINITRATE
  13. EMPAGLIFLOZIN [Concomitant]
     Active Substance: EMPAGLIFLOZIN
  14. LISINOPRIL [Concomitant]
     Active Substance: LISINOPRIL
  15. OXYCODONE HYDROCHLORIDE [Concomitant]
     Active Substance: OXYCODONE HYDROCHLORIDE
  16. SERTRALINE [Concomitant]
     Active Substance: SERTRALINE HYDROCHLORIDE
  17. SPIRONOLACTONE [Concomitant]
     Active Substance: SPIRONOLACTONE
  18. TAMSULOSIN HYDROCHLORIDE [Concomitant]
     Active Substance: TAMSULOSIN HYDROCHLORIDE
  19. RELUGOLIX [Suspect]
     Active Substance: RELUGOLIX
     Indication: Prostate cancer
     Dosage: STRENGTH: 120 MG?120 MILLIGRAM, QD
     Route: 048
     Dates: end: 20231001

REACTIONS (7)
  - Fall [Unknown]
  - Dizziness [Unknown]
  - Dyspnoea [Unknown]
  - Injury [Unknown]
  - Road traffic accident [Unknown]
  - Tremor [Unknown]
  - Insomnia [Unknown]

NARRATIVE: CASE EVENT DATE: 20230921
